FAERS Safety Report 24639444 (Version 2)
Quarter: 2024Q4

REPORT INFORMATION
  Report Type: Spontaneous
  Country: FR (occurrence: FR)
  Receive Date: 20241119
  Receipt Date: 20241203
  Transmission Date: 20250115
  Serious: Yes (Other)
  Sender: ABBVIE
  Company Number: None

PATIENT
  Age: 41 Year
  Sex: Male

DRUGS (1)
  1. RINVOQ [Suspect]
     Active Substance: UPADACITINIB
     Indication: Dermatitis atopic
     Dosage: FORM STRENGTH UNITS: 30 MILLIGRAM
     Route: 048
     Dates: start: 202203, end: 202410

REACTIONS (6)
  - Keratitis bacterial [Recovered/Resolved with Sequelae]
  - Eyelid injury [Unknown]
  - Lichenification [Unknown]
  - Visual acuity reduced [Unknown]
  - Impaired driving ability [Unknown]
  - Eczema [Unknown]

NARRATIVE: CASE EVENT DATE: 20240101
